FAERS Safety Report 7598272-8 (Version None)
Quarter: 2011Q3

REPORT INFORMATION
  Report Type: 
  Country: None (occurrence: None)
  Receive Date: 20110708
  Receipt Date: 20110701
  Transmission Date: 20111222
  Serious: Yes (Life-Threatening, Hospitalization, Other)
  Sender: FDA-Public Use
  Company Number: DK-ELI_LILLY_AND_COMPANY-DK201107000509

PATIENT
  Sex: Female
  Weight: 75 kg

DRUGS (2)
  1. EFFIENT [Suspect]
     Indication: ARTERIAL STENT INSERTION
     Dosage: 10 MG, QD
     Route: 048
     Dates: start: 20110118
  2. ASPIRIN [Concomitant]
     Indication: ARTERIAL STENT INSERTION
     Dosage: UNK
     Route: 065
     Dates: start: 20110118

REACTIONS (2)
  - SUBDURAL HAEMATOMA [None]
  - HEAD INJURY [None]
